FAERS Safety Report 4981927-9 (Version None)
Quarter: 2006Q2

REPORT INFORMATION
  Report Type: 
  Country: None (occurrence: None)
  Receive Date: 20060425
  Receipt Date: 20050928
  Transmission Date: 20061013
  Serious: Yes (Hospitalization, Other)
  Sender: FDA-Public Use
  Company Number: US-MERCK-0509USA04413

PATIENT
  Age: 47 Year
  Sex: Male
  Weight: 110 kg

DRUGS (12)
  1. VIOXX [Suspect]
     Indication: ARTHRITIS
     Route: 048
     Dates: start: 20011228, end: 20030923
  2. POTASSIUM (UNSPECIFIED) [Concomitant]
     Route: 065
  3. HYDROCODONE HYDROCHLORIDE [Concomitant]
     Route: 065
  4. CLARITIN [Concomitant]
     Route: 065
  5. PANMIST DM [Concomitant]
     Route: 048
  6. GUIATUSS DM [Concomitant]
     Route: 065
  7. FLEXERIL [Concomitant]
     Route: 048
  8. LOTENSIN [Concomitant]
     Route: 065
  9. FUROSEMIDE [Concomitant]
     Route: 065
  10. ZOCOR [Concomitant]
     Route: 065
  11. ACIPHEX [Concomitant]
     Route: 065
  12. [THERAPY UNSPECIFIED] [Concomitant]
     Route: 065

REACTIONS (5)
  - CHRONIC OBSTRUCTIVE PULMONARY DISEASE [None]
  - CORONARY ARTERY DISEASE [None]
  - HYPERTENSION [None]
  - INJURY [None]
  - MYOCARDIAL INFARCTION [None]
